FAERS Safety Report 5456241-8 (Version None)
Quarter: 2007Q3

REPORT INFORMATION
  Report Type: 
  Country: None (occurrence: None)
  Receive Date: 20070918
  Receipt Date: 20061116
  Transmission Date: 20080115
  Serious: No
  Sender: FDA-Public Use
  Company Number: US-ASTRAZENECA-2006UW24623

PATIENT

DRUGS (1)
  1. SEROQUEL [Suspect]
     Dosage: PATIENT TOOK EXTRA DOSE (600 MG)
     Route: 048

REACTIONS (3)
  - ACCIDENTAL OVERDOSE [None]
  - DYSARTHRIA [None]
  - PSYCHOMOTOR SKILLS IMPAIRED [None]
